FAERS Safety Report 7457987-2 (Version None)
Quarter: 2011Q1

REPORT INFORMATION
  Report Type: 
  Country: None (occurrence: None)
  Receive Date: 20110302
  Receipt Date: 20101022
  Transmission Date: 20110831
  Serious: Yes (Hospitalization, Other)
  Sender: FDA-Public Use
  Company Number: 163-21880-10090358

PATIENT
  Age: 59 Year
  Sex: Female

DRUGS (7)
  1. ZOFRAN [Concomitant]
  2. ZOMETA [Concomitant]
  3. CYTOXAN [Concomitant]
  4. NEULASTA [Concomitant]
  5. EMEND [Concomitant]
  6. REVLIMID [Suspect]
     Indication: MULTIPLE MYELOMA
     Dosage: 25 MG, DAILY FOR 21 DAYS, PO
     Route: 048
     Dates: start: 20100301, end: 20100816
  7. ADRIAMYCIN PFS [Concomitant]

REACTIONS (2)
  - BREAST CANCER [None]
  - DISEASE PROGRESSION [None]
